FAERS Safety Report 8507877-9 (Version None)
Quarter: 2012Q3

REPORT INFORMATION
  Report Type: 
  Country: None (occurrence: None)
  Receive Date: 20120709
  Receipt Date: 20120709
  Transmission Date: 20120928
  Serious: Yes (Life-Threatening, Hospitalization, Disabling)
  Sender: FDA-Public Use
  Company Number: None

PATIENT
  Age: 22 Year
  Sex: Male
  Weight: 113.3993 kg

DRUGS (1)
  1. LEVAQUIN [Suspect]

REACTIONS (8)
  - SUICIDAL IDEATION [None]
  - INSOMNIA [None]
  - ANXIETY [None]
  - SUICIDAL BEHAVIOUR [None]
  - RESTLESSNESS [None]
  - PSYCHOTIC DISORDER [None]
  - DEPRESSION [None]
  - PARANOIA [None]
